FAERS Safety Report 11524436 (Version 1)
Quarter: 2015Q3

REPORT INFORMATION
  Report Type: Spontaneous
  Country: US (occurrence: US)
  Receive Date: 20150903
  Receipt Date: 20150903
  Transmission Date: 20151125
  Serious: No
  Sender: FDA-Public Use
  Company Number: US-ELI_LILLY_AND_COMPANY-US201305002308

PATIENT
  Age: 41 Year
  Sex: Female
  Weight: 53 kg

DRUGS (10)
  1. SPIRONOLACTONE. [Concomitant]
     Active Substance: SPIRONOLACTONE
     Indication: ACNE
     Dosage: UNK, UNKNOWN
     Route: 065
  2. METHERGINE [Concomitant]
     Active Substance: METHYLERGONOVINE MALEATE
     Indication: MIGRAINE
     Dosage: UNK, PRN
     Route: 065
  3. CYMBALTA [Suspect]
     Active Substance: DULOXETINE HYDROCHLORIDE
     Dosage: 30 MG (SEVERAL WEEKS), QD
     Route: 048
     Dates: start: 20130318
  4. VITAMIN D [Concomitant]
     Active Substance: CHOLECALCIFEROL
     Dosage: UNK, UNKNOWN
     Route: 065
  5. CYMBALTA [Suspect]
     Active Substance: DULOXETINE HYDROCHLORIDE
     Indication: FIBROMYALGIA
     Dosage: 60 MG, BID
     Route: 048
     Dates: start: 201204, end: 20130317
  6. CYMBALTA [Suspect]
     Active Substance: DULOXETINE HYDROCHLORIDE
     Dosage: 30 MG (SEVERAL WEEKS), QOD
     Route: 048
     Dates: end: 20130430
  7. FLEXERIL [Concomitant]
     Active Substance: CYCLOBENZAPRINE HYDROCHLORIDE
     Indication: MIGRAINE
     Dosage: UNK UNK, PRN
     Route: 065
  8. CALCIUM [Concomitant]
     Active Substance: CALCIUM
     Dosage: UNK, UNKNOWN
     Route: 065
  9. MAGNESIUM [Concomitant]
     Active Substance: MAGNESIUM
     Dosage: UNK, UNKNOWN
     Route: 065
  10. PHENERGAN [Concomitant]
     Active Substance: PROMETHAZINE HYDROCHLORIDE
     Indication: NAUSEA
     Dosage: UNK, PRN
     Route: 065

REACTIONS (20)
  - Cerebral disorder [Recovering/Resolving]
  - Feeling abnormal [Recovering/Resolving]
  - Anxiety [Recovering/Resolving]
  - Hypoaesthesia [Recovering/Resolving]
  - Constipation [Recovering/Resolving]
  - Depressed mood [Recovering/Resolving]
  - Migraine [Recovering/Resolving]
  - Urinary incontinence [Recovering/Resolving]
  - Agitation [Recovering/Resolving]
  - Insomnia [Recovering/Resolving]
  - Drug withdrawal syndrome [Recovering/Resolving]
  - Headache [Recovering/Resolving]
  - Feeling abnormal [Recovering/Resolving]
  - Somnolence [Recovering/Resolving]
  - Pain [Recovering/Resolving]
  - Drug ineffective [Recovering/Resolving]
  - Restlessness [Recovering/Resolving]
  - Fatigue [Recovering/Resolving]
  - Abdominal pain [Recovering/Resolving]
  - Abdominal discomfort [Recovering/Resolving]

NARRATIVE: CASE EVENT DATE: 201303
